FAERS Safety Report 6238904-X (Version None)
Quarter: 2009Q2

REPORT INFORMATION
  Report Type: 
  Country: None (occurrence: None)
  Receive Date: 20090617
  Receipt Date: 20090617
  Transmission Date: 20091009
  Serious: No
  Sender: FDA-Public Use
  Company Number: None

PATIENT
  Age: 48 Year
  Sex: Female
  Weight: 90.7194 kg

DRUGS (2)
  1. LEXAPRO [Suspect]
     Indication: ANXIETY
     Dosage: 15 MG 1X DAILY PO
     Route: 048
     Dates: start: 20090601, end: 20090616
  2. LEXAPRO [Suspect]
     Indication: DEPRESSION
     Dosage: 15 MG 1X DAILY PO
     Route: 048
     Dates: start: 20090601, end: 20090616

REACTIONS (4)
  - MUSCULAR WEAKNESS [None]
  - MUSCULOSKELETAL STIFFNESS [None]
  - NEURALGIA [None]
  - PAIN [None]
